FAERS Safety Report 8927213 (Version 2)
Quarter: 2012Q4

REPORT INFORMATION
  Report Type: 
  Country: US (occurrence: US)
  Receive Date: 20121127
  Receipt Date: 20121212
  Transmission Date: 20130627
  Serious: Yes (Death)
  Sender: FDA-Public Use
  Company Number: US-ROCHE-1157506

PATIENT
  Age: 68 Year
  Sex: Female

DRUGS (2)
  1. ACTEMRA [Suspect]
     Indication: RHEUMATOID ARTHRITIS
     Dosage: patient received 3 doses
     Route: 042
     Dates: start: 2012
  2. ACTEMRA [Suspect]
     Route: 065
     Dates: end: 20121116

REACTIONS (1)
  - Aneurysm ruptured [Fatal]
